FAERS Safety Report 20397234 (Version 2)
Quarter: 2022Q1

REPORT INFORMATION
  Report Type: Spontaneous
  Country: US (occurrence: US)
  Receive Date: 20220131
  Receipt Date: 20220201
  Transmission Date: 20220423
  Serious: No
  Sender: FDA-Public Use
  Company Number: US-ABBVIE-21K-163-3897751-00

PATIENT
  Age: 74 Year
  Sex: Female
  Weight: 70.370 kg

DRUGS (16)
  1. HUMIRA [Suspect]
     Active Substance: ADALIMUMAB
     Indication: Psoriasis
     Route: 058
     Dates: start: 2020, end: 20210430
  2. HUMIRA [Suspect]
     Active Substance: ADALIMUMAB
     Indication: Systemic lupus erythematosus
     Route: 058
     Dates: start: 20210507
  3. COVID-19 VACCINE [Concomitant]
     Indication: COVID-19 immunisation
     Dosage: MANUFAACTURER??PFIZER
     Route: 030
     Dates: start: 20210115, end: 20210115
  4. COVID-19 VACCINE [Concomitant]
     Dosage: MANUFACTURER??PFIZER
     Route: 030
     Dates: start: 20210205, end: 20210205
  5. ATENOLOL [Concomitant]
     Active Substance: ATENOLOL
     Indication: Hypertension
  6. ESTRADIOL [Concomitant]
     Active Substance: ESTRADIOL
     Indication: Menopause
  7. ATORVASTATIN [Concomitant]
     Active Substance: ATORVASTATIN
     Indication: Blood calcium
  8. LEUCOVORIN [Concomitant]
     Active Substance: LEUCOVORIN
     Indication: Blood calcium
  9. GABAPENTIN [Concomitant]
     Active Substance: GABAPENTIN
     Indication: Pain
  10. BUPROPION [Concomitant]
     Active Substance: BUPROPION
     Indication: Sleep disorder
  11. AMBIEN [Concomitant]
     Active Substance: ZOLPIDEM TARTRATE
     Indication: Sleep disorder
  12. LEVOTHYROXINE [Concomitant]
     Active Substance: LEVOTHYROXINE
     Indication: Product used for unknown indication
  13. HYDROCODONE [Concomitant]
     Active Substance: HYDROCODONE
     Indication: Pain
  14. METHOTREXATE [Concomitant]
     Active Substance: METHOTREXATE
     Indication: Product used for unknown indication
  15. IRON [Concomitant]
     Active Substance: IRON
     Indication: Supplementation therapy
  16. FIBER [Concomitant]
     Active Substance: PSYLLIUM HUSK
     Indication: Supplementation therapy

REACTIONS (3)
  - Pruritus [Recovering/Resolving]
  - Condition aggravated [Recovering/Resolving]
  - Therapeutic product effect incomplete [Recovering/Resolving]

NARRATIVE: CASE EVENT DATE: 20210201
